APPROVED DRUG PRODUCT: GLUCOTROL XL
Active Ingredient: GLIPIZIDE
Strength: 5MG
Dosage Form/Route: TABLET, EXTENDED RELEASE;ORAL
Application: N020329 | Product #001 | TE Code: AB
Applicant: PFIZER INC
Approved: Apr 26, 1994 | RLD: Yes | RS: No | Type: RX